FAERS Safety Report 8177668-X (Version None)
Quarter: 2012Q1

REPORT INFORMATION
  Report Type: 
  Country: None (occurrence: None)
  Receive Date: 20120301
  Receipt Date: 20120224
  Transmission Date: 20120608
  Serious: Yes (Other)
  Sender: FDA-Public Use
  Company Number: PHHY2012IT016551

PATIENT
  Sex: Male

DRUGS (3)
  1. LEUPROLIDE ACETATE [Concomitant]
  2. TAXOTERE [Concomitant]
  3. ZOMETA [Suspect]
     Indication: METASTASES TO BONE
     Dosage: 4 MG, QMO
     Route: 042
     Dates: start: 20070501, end: 20071101

REACTIONS (2)
  - OSTEOLYSIS [None]
  - OSTEONECROSIS OF JAW [None]
